FAERS Safety Report 12389975 (Version 1)
Quarter: 2016Q2

REPORT INFORMATION
  Report Type: Spontaneous
  Country: NO (occurrence: NO)
  Receive Date: 20160520
  Receipt Date: 20160520
  Transmission Date: 20160815
  Serious: Yes (Hospitalization)
  Sender: FDA-Public Use
  Company Number: NO-GUERBET LLC-1052552

PATIENT
  Age: 27 Year
  Sex: Female

DRUGS (4)
  1. BUSCOPAN(HYOSCINE BUTYLBROMIDE) [Suspect]
     Active Substance: BUTYLSCOPOLAMINE BROMIDE
     Route: 042
     Dates: start: 20160418, end: 20160418
  2. GLUCAGON NOVO NORDISK(GLUCAGON) [Suspect]
     Active Substance: GLUCAGON
     Route: 030
     Dates: start: 20160418, end: 20160418
  3. TOILAX(BISACODYL) [Suspect]
     Active Substance: BISACODYL
     Route: 054
     Dates: start: 20160418, end: 20160418
  4. DOTAREM [Suspect]
     Active Substance: GADOTERATE MEGLUMINE
     Indication: NUCLEAR MAGNETIC RESONANCE IMAGING
     Route: 042
     Dates: start: 20160418, end: 20160418

REACTIONS (5)
  - Contrast media reaction [None]
  - Chills [Recovered/Resolved]
  - Hyperventilation [Recovered/Resolved]
  - Headache [Recovered/Resolved]
  - Nausea [Recovered/Resolved]

NARRATIVE: CASE EVENT DATE: 20160418
